FAERS Safety Report 14507130 (Version 1)
Quarter: 2018Q1

REPORT INFORMATION
  Report Type: Spontaneous
  Country: IE (occurrence: IE)
  Receive Date: 20180208
  Receipt Date: 20180208
  Transmission Date: 20180509
  Serious: Yes (Other)
  Sender: FDA-Public Use
  Company Number: IE-ALLERGAN-1805835US

PATIENT
  Age: 68 Year

DRUGS (8)
  1. SYMBICORT [Concomitant]
     Active Substance: BUDESONIDE\FORMOTEROL FUMARATE DIHYDRATE
     Indication: ASTHMA
     Dosage: UNK
     Route: 048
     Dates: start: 20081117, end: 20171108
  2. DIAZEPAM. [Concomitant]
     Active Substance: DIAZEPAM
     Indication: ANXIETY
     Dosage: UNK UNK, PRN
     Route: 065
     Dates: start: 20131111, end: 20171108
  3. SILODOSIN - BP [Suspect]
     Active Substance: SILODOSIN
     Indication: LOWER URINARY TRACT SYMPTOMS
  4. SILODOSIN - BP [Suspect]
     Active Substance: SILODOSIN
     Indication: PROSTATIC OBSTRUCTION
     Dosage: UNK, QD
     Route: 048
     Dates: start: 20161130, end: 20171108
  5. SERC [Concomitant]
     Active Substance: BETAHISTINE HYDROCHLORIDE
     Indication: VERTIGO
     Dosage: 16 MG, TID, AS NEEDED
     Route: 065
     Dates: start: 20100720, end: 20171108
  6. ISPAGHULA EXTRACT\PSYLLIUM [Concomitant]
     Active Substance: HERBALS\PLANTAGO OVATA SEED\PLANTAGO SEED
     Indication: CONSTIPATION
     Dosage: 3.5 G, QD
     Route: 048
  7. NASONEX AQUEOUS [Concomitant]
     Indication: RHINITIS
     Dosage: 50 ?G, BID
     Route: 045
     Dates: start: 20130801, end: 20171108
  8. DIAZEPAM. [Concomitant]
     Active Substance: DIAZEPAM
     Indication: PANIC DISORDER

REACTIONS (2)
  - Muscular weakness [Unknown]
  - Gait disturbance [Unknown]

NARRATIVE: CASE EVENT DATE: 20161130
